FAERS Safety Report 4659372-5 (Version None)
Quarter: 2005Q2

REPORT INFORMATION
  Report Type: 
  Country: None (occurrence: None)
  Receive Date: 20050510
  Receipt Date: 20050427
  Transmission Date: 20051028
  Serious: Yes (Other)
  Sender: FDA-Public Use
  Company Number: 2005067088

PATIENT
  Sex: Female

DRUGS (1)
  1. BEXTRA [Suspect]
     Indication: ILL-DEFINED DISORDER
     Dosage: 40 MG (40 MG, 1 D IN 1 D), ORAL
     Route: 048
     Dates: start: 20040101

REACTIONS (7)
  - CONDITION AGGRAVATED [None]
  - CONVULSION [None]
  - GINGIVAL BLEEDING [None]
  - HAEMORRHAGE [None]
  - HAEMORRHAGIC STROKE [None]
  - PAIN IN EXTREMITY [None]
  - WHEELCHAIR USER [None]
